FAERS Safety Report 9515239 (Version 1)
Quarter: 2013Q1

REPORT INFORMATION
  Report Type: Spontaneous
  Country: US (occurrence: None)
  Receive Date: 20130305
  Receipt Date: 20130305
  Transmission Date: 20140127
  Serious: Yes (Hospitalization, Other)
  Sender: FDA-Public Use
  Company Number: 163-21880-12121726

PATIENT
  Age: 74 Year
  Sex: Female

DRUGS (9)
  1. REVLIMID [Suspect]
     Indication: PLASMA CELL MYELOMA
     Dosage: 5/12/2012 - TEMPORARILY INTERRUPTED?14 IN 14 D
     Route: 048
     Dates: start: 20120512
  2. ALLOPURINOL [Concomitant]
  3. ANTIHISTAMINE DECONGESTANT [Concomitant]
  4. ASPIRIN [Concomitant]
  5. CALCITONIN [Concomitant]
  6. DEXAMETHASON [Concomitant]
  7. FAMOTIDINE [Concomitant]
  8. FORTEO (TERIPARATIDE) [Concomitant]
  9. GABAPENTIN [Concomitant]

REACTIONS (3)
  - Dehydration [None]
  - Vomiting [None]
  - Nausea [None]
